FAERS Safety Report 25817614 (Version 1)
Quarter: 2025Q3

REPORT INFORMATION
  Report Type: Report from Study
  Country: US (occurrence: US)
  Receive Date: 20250918
  Receipt Date: 20250918
  Transmission Date: 20251021
  Serious: Yes (Death)
  Sender: OTSUKA
  Company Number: US-MMM-Otsuka-Q9KUH57O

PATIENT

DRUGS (1)
  1. TOLVAPTAN [Suspect]
     Active Substance: TOLVAPTAN
     Indication: Congenital cystic kidney disease
     Route: 065
     Dates: start: 20230315

REACTIONS (1)
  - Death [Fatal]

NARRATIVE: CASE EVENT DATE: 20250816
